FAERS Safety Report 10507673 (Version 1)
Quarter: 2014Q4

REPORT INFORMATION
  Report Type: Spontaneous
  Country: SE (occurrence: SE)
  Receive Date: 20141009
  Receipt Date: 20141009
  Transmission Date: 20150528
  Serious: Yes (Other)
  Sender: FDA-Public Use
  Company Number: SE-PFIZER INC-2014275459

PATIENT
  Sex: Female

DRUGS (2)
  1. PROVERA [Suspect]
     Active Substance: MEDROXYPROGESTERONE ACETATE
     Dosage: 10 MG, 1X/DAY AT NIGHT
     Route: 048
  2. PREDNISOLON ALTERNOVA [Suspect]
     Active Substance: PREDNISOLONE
     Dosage: 30 MG, DAILY (5MG X 6 IN THE MORNING)
     Route: 048

REACTIONS (1)
  - Heart rate increased [Unknown]
